FAERS Safety Report 14127573 (Version 2)
Quarter: 2018Q1

REPORT INFORMATION
  Report Type: Spontaneous
  Country: NL (occurrence: NL)
  Receive Date: 20171026
  Receipt Date: 20180105
  Transmission Date: 20180508
  Serious: Yes (Other)
  Sender: FDA-Public Use
  Company Number: NL-LUPIN PHARMACEUTICALS INC.-2017-06133

PATIENT
  Age: 45 Year
  Sex: Male

DRUGS (4)
  1. VORICONAZOLE. [Suspect]
     Active Substance: VORICONAZOLE
     Dosage: 300 MG, QD (DEFINED DAILY DOSE OF 200 MG)
     Route: 065
  2. VORICONAZOLE. [Suspect]
     Active Substance: VORICONAZOLE
     Indication: SYSTEMIC MYCOSIS
     Dosage: 100 MG, QD (DEFINED DAILY DOSE OF 200 MG)
     Route: 065
  3. VORICONAZOLE. [Suspect]
     Active Substance: VORICONAZOLE
     Dosage: 200 MG, QD (DEFINED DAILY DOSE OF 200 MG)
     Route: 065
  4. VORICONAZOLE. [Suspect]
     Active Substance: VORICONAZOLE
     Dosage: 400 MG, QD (DEFINED DAILY DOSE OF 200 MG)
     Route: 065

REACTIONS (3)
  - Liver function test abnormal [Unknown]
  - Medication error [Unknown]
  - Drug resistance [Unknown]
